FAERS Safety Report 13214082 (Version 2)
Quarter: 2017Q2

REPORT INFORMATION
  Report Type: Report from Study
  Country: US (occurrence: US)
  Receive Date: 20170210
  Receipt Date: 20170412
  Transmission Date: 20170830
  Serious: Yes (Other)
  Sender: FDA-Public Use
  Company Number: US-009507513-1702USA000743

PATIENT
  Sex: Male

DRUGS (4)
  1. INVANZ [Suspect]
     Active Substance: ERTAPENEM SODIUM
     Indication: DIABETIC FOOT
     Dosage: UNK
  2. INVANZ [Suspect]
     Active Substance: ERTAPENEM SODIUM
     Indication: OSTEOMYELITIS
  3. INVANZ [Suspect]
     Active Substance: ERTAPENEM SODIUM
     Indication: PAIN IN EXTREMITY
  4. INVANZ [Suspect]
     Active Substance: ERTAPENEM SODIUM
     Indication: PERIPHERAL SWELLING

REACTIONS (12)
  - Intervertebral disc displacement [Unknown]
  - Hypothyroidism [Unknown]
  - Skin ulcer [Unknown]
  - Gastrooesophageal reflux disease [Unknown]
  - Hypertension [Unknown]
  - Hypercholesterolaemia [Unknown]
  - Benign prostatic hyperplasia [Unknown]
  - Pulmonary embolism [Unknown]
  - Insomnia [Unknown]
  - Back pain [Unknown]
  - Psychosexual disorder [Unknown]
  - Intervertebral disc degeneration [Unknown]
